FAERS Safety Report 4611073-5 (Version None)
Quarter: 2005Q1

REPORT INFORMATION
  Report Type: 
  Country: None (occurrence: None)
  Receive Date: 20050316
  Receipt Date: 20050316
  Transmission Date: 20050727
  Serious: Yes (Life-Threatening, Hospitalization, Other)
  Sender: FDA-Public Use
  Company Number: None

PATIENT
  Age: 56 Year
  Sex: Male
  Weight: 81.6475 kg

DRUGS (9)
  1. ASPIRIN [Suspect]
  2. WARFARIN [Concomitant]
  3. CARVEDILOL [Concomitant]
  4. CLONIDINE [Concomitant]
  5. DOXYCYCLINE [Concomitant]
  6. FOSINOPRIL [Concomitant]
  7. GLIIPIZIDE [Concomitant]
  8. OMEPRAZOLE [Concomitant]
  9. SILDENAFIL [Concomitant]

REACTIONS (9)
  - ASTHENIA [None]
  - DUODENAL ULCER [None]
  - GASTRITIS EROSIVE [None]
  - HAEMATEMESIS [None]
  - HAEMODIALYSIS [None]
  - LOSS OF CONSCIOUSNESS [None]
  - MEDICATION ERROR [None]
  - MELAENA [None]
  - VOMITING PROJECTILE [None]
